FAERS Safety Report 9071140 (Version 6)
Quarter: 2013Q2

REPORT INFORMATION
  Report Type: Spontaneous
  Country: US (occurrence: US)
  Receive Date: 20130206
  Receipt Date: 20130524
  Transmission Date: 20140414
  Serious: Yes (Death, Hospitalization)
  Sender: FDA-Public Use
  Company Number: US-B.I. PHARMACEUTICALS,INC./RIDGEFIELD-2013-BI-02904BP

PATIENT
  Age: 81 Year
  Sex: Female
  Weight: 113.4 kg

DRUGS (15)
  1. PRADAXA [Suspect]
     Dosage: 150 MG
     Dates: start: 20110119
  2. ATIVAN [Concomitant]
     Dates: start: 20101028
  3. ASPIRIN [Concomitant]
     Dosage: 81 MG
     Route: 048
  4. SUCRALFATE [Concomitant]
     Dosage: 1 G
  5. CRESTOR [Concomitant]
     Dosage: 40 MG
     Route: 048
  6. POTASSIUM CL ER [Concomitant]
     Dosage: 10 MEQ
  7. LASIX [Concomitant]
     Dosage: 80 MG
     Route: 048
  8. MACROBID [Concomitant]
     Dosage: 100 MG
     Route: 048
  9. MOBIC [Concomitant]
     Dosage: 7.5 MG
  10. LISINOPRIL [Concomitant]
     Dosage: 40 MG
     Route: 048
  11. COREG [Concomitant]
     Dosage: 6.25 MG
     Route: 048
  12. TRAMADOL HCL [Concomitant]
     Dosage: 50 MG
  13. REGLAN [Concomitant]
     Dosage: 5 MG
     Route: 048
  14. NEXIUM [Concomitant]
     Dosage: 40 MG
     Route: 048
  15. JANUVIA [Concomitant]
     Dosage: 100 MG
     Route: 048

REACTIONS (3)
  - Disseminated intravascular coagulation [Fatal]
  - Coagulopathy [Fatal]
  - Gastrointestinal haemorrhage [Fatal]
